FAERS Safety Report 23600971 (Version 1)
Quarter: 2024Q1

REPORT INFORMATION
  Report Type: Spontaneous
  Country: FR (occurrence: FR)
  Receive Date: 20240306
  Receipt Date: 20240306
  Transmission Date: 20240410
  Serious: Yes (Other)
  Sender: FDA-Public Use
  Company Number: FR-OTSUKA-2024_003832

PATIENT
  Age: 31 Year
  Sex: Female
  Weight: 48 kg

DRUGS (4)
  1. ABILIFY MAINTENA [Suspect]
     Active Substance: ARIPIPRAZOLE
     Indication: Psychotic disorder
     Dosage: 400 MG
     Route: 065
     Dates: end: 20231205
  2. ABILIFY [Suspect]
     Active Substance: ARIPIPRAZOLE
     Indication: Psychotic disorder
     Dosage: 5 MG
     Route: 065
     Dates: start: 20240116
  3. OXAZEPAM [Concomitant]
     Active Substance: OXAZEPAM
     Indication: Product used for unknown indication
     Dosage: 30 MG (3 SERESTA)
     Route: 065
  4. LOXAPINE HYDROCHLORIDE [Concomitant]
     Active Substance: LOXAPINE HYDROCHLORIDE
     Indication: Product used for unknown indication
     Dosage: HALF, IF NEEDED
     Route: 065

REACTIONS (4)
  - Abortion spontaneous [Recovered/Resolved]
  - Off label use [Not Recovered/Not Resolved]
  - Therapy change [Unknown]
  - Maternal exposure during pregnancy [Unknown]

NARRATIVE: CASE EVENT DATE: 20240116
